FAERS Safety Report 8500494-6 (Version None)
Quarter: 2012Q3

REPORT INFORMATION
  Report Type: 
  Country: None (occurrence: None)
  Receive Date: 20120705
  Receipt Date: 20120705
  Transmission Date: 20120928
  Serious: Yes (Hospitalization)
  Sender: FDA-Public Use
  Company Number: None

PATIENT
  Age: 86 Year
  Sex: Male
  Weight: 81.4 kg

DRUGS (1)
  1. LISINOPRIL [Suspect]
     Indication: HYPERTENSION
     Dosage: MG PO
     Route: 048
     Dates: start: 20120327, end: 20120511

REACTIONS (5)
  - LARYNGEAL DISORDER [None]
  - ANGIOEDEMA [None]
  - DYSPHONIA [None]
  - POOR DENTAL CONDITION [None]
  - DEAFNESS [None]
